FAERS Safety Report 5832364-6 (Version None)
Quarter: 2008Q3

REPORT INFORMATION
  Report Type: 
  Country: None (occurrence: None)
  Receive Date: 20080804
  Receipt Date: 20080729
  Transmission Date: 20090109
  Serious: Yes (Death, Other)
  Sender: FDA-Public Use
  Company Number: US-AVENTIS-200810293US

PATIENT
  Sex: Male

DRUGS (18)
  1. KETEK [Suspect]
     Dosage: DOSE: UNK
     Route: 048
     Dates: start: 20060523, end: 20060501
  2. FLAGYL [Concomitant]
     Dates: start: 20060426
  3. SPIRONOLACTONE [Concomitant]
     Dosage: DOSE: UNK
  4. POTASSIUM CHLORIDE [Concomitant]
     Dosage: DOSE: UNK
  5. FUROSEMIDE [Concomitant]
     Dosage: DOSE: UNK
  6. HEXAVITAMIN [Concomitant]
     Dosage: DOSE: UNK
  7. PROPRANOLOL [Concomitant]
     Dosage: DOSE: UNK
  8. PROTONIX [Concomitant]
  9. LEVAQUIN [Concomitant]
     Dosage: DOSE: UNK
  10. HYDROCODONE BITARTRATE [Concomitant]
     Dosage: DOSE: UNK
  11. SULFAMETHOXAZOLE AND TRIMETHOPRIM [Concomitant]
     Dosage: DOSE: UNK
  12. MACROBID                           /00024401/ [Concomitant]
     Dosage: DOSE: UNK
  13. HALFLYTELY                         /02126801/ [Concomitant]
     Dosage: DOSE: UNK
  14. LEVOTHYROXINE SODIUM [Concomitant]
     Dosage: DOSE: UNK
  15. LORAZEPAM [Concomitant]
     Dosage: DOSE: UNK
  16. SODIUM CHLORIDE 0.9% [Concomitant]
     Dosage: DOSE: UNK
  17. METOCLOPRAMIDE HCL [Concomitant]
     Dosage: DOSE: UNK
  18. SODIUM CHLORIDE [Concomitant]
     Dosage: DOSE: UNK

REACTIONS (20)
  - ABDOMINAL PAIN [None]
  - ACUTE RESPIRATORY FAILURE [None]
  - ASCITES [None]
  - ASTHENIA [None]
  - FATIGUE [None]
  - HEPATIC ENCEPHALOPATHY [None]
  - HEPATIC ENZYME INCREASED [None]
  - HEPATIC FAILURE [None]
  - HEPATORENAL SYNDROME [None]
  - HYPOCHLORAEMIA [None]
  - HYPONATRAEMIA [None]
  - JAUNDICE [None]
  - MALNUTRITION [None]
  - NAUSEA [None]
  - PNEUMONIA ASPIRATION [None]
  - PYREXIA [None]
  - RENAL FAILURE [None]
  - UPPER GASTROINTESTINAL HAEMORRHAGE [None]
  - VOMITING [None]
  - WAIST CIRCUMFERENCE INCREASED [None]
